FAERS Safety Report 5638327-8 (Version None)
Quarter: 2008Q1

REPORT INFORMATION
  Report Type: 
  Country: None (occurrence: None)
  Receive Date: 20080226
  Receipt Date: 20080213
  Transmission Date: 20080703
  Serious: Yes (Other)
  Sender: FDA-Public Use
  Company Number: CA-AMGEN-QUU264317

PATIENT
  Sex: Female

DRUGS (1)
  1. KINERET [Suspect]
     Indication: DRUG USE FOR UNKNOWN INDICATION
     Dates: start: 20070101

REACTIONS (3)
  - INFLUENZA [None]
  - JUVENILE ARTHRITIS [None]
  - SERUM FERRITIN INCREASED [None]
